FAERS Safety Report 8616348 (Version 2)
Quarter: 2012Q4

REPORT INFORMATION
  Report Type: 
  Country: US (occurrence: US)
  Receive Date: 20120614
  Receipt Date: 20121017
  Transmission Date: 20130627
  Serious: Yes (Hospitalization)
  Sender: FDA-Public Use
  Company Number: US-ELI_LILLY_AND_COMPANY-US201206002103

PATIENT
  Age: 85 Year
  Sex: Female

DRUGS (14)
  1. FORTEO [Suspect]
     Indication: OSTEOPOROSIS
     Dosage: 20 ug, qd
     Dates: start: 20111214
  2. LEVSIN [Concomitant]
     Dosage: UNK
  3. CELEBREX [Concomitant]
     Dosage: UNK
  4. CETIRIZINE [Concomitant]
     Dosage: UNK
  5. AMBIEN [Concomitant]
     Dosage: UNK
  6. NEXIUM [Concomitant]
     Dosage: UNK
  7. PRAVASTATIN [Concomitant]
     Dosage: UNK
  8. MULTIVITAMIN [Concomitant]
     Dosage: UNK
  9. CALCIUM [Concomitant]
     Dosage: UNK
  10. CALTRATE [Concomitant]
     Dosage: UNK
  11. CARVEDILOL [Concomitant]
     Dosage: UNK
  12. DIOVAN [Concomitant]
     Dosage: UNK
  13. AMLODIPINE BESYLATE [Concomitant]
     Dosage: UNK
  14. ASPIRIN [Concomitant]
     Dosage: UNK

REACTIONS (3)
  - Cystitis [Unknown]
  - Gallbladder disorder [Unknown]
  - Sepsis [Unknown]
